FAERS Safety Report 7980914-6 (Version None)
Quarter: 2011Q4

REPORT INFORMATION
  Report Type: 
  Country: None (occurrence: None)
  Receive Date: 20111215
  Receipt Date: 20111212
  Transmission Date: 20120403
  Serious: Yes (Hospitalization)
  Sender: FDA-Public Use
  Company Number: US-BIOGENIDEC-2011BI037228

PATIENT
  Age: 51 Year
  Sex: Female

DRUGS (1)
  1. TYSABRI [Suspect]
     Indication: MULTIPLE SCLEROSIS
     Route: 042
     Dates: start: 20081117

REACTIONS (6)
  - EYE DISORDER [None]
  - INFECTION [None]
  - URINARY TRACT INFECTION [None]
  - ESCHERICHIA SEPSIS [None]
  - DEHYDRATION [None]
  - DEPRESSION [None]
